FAERS Safety Report 6600149-9 (Version None)
Quarter: 2010Q1

REPORT INFORMATION
  Report Type: 
  Country: None (occurrence: None)
  Receive Date: 20100224
  Receipt Date: 20100219
  Transmission Date: 20100710
  Serious: Yes (Hospitalization)
  Sender: FDA-Public Use
  Company Number: A0816304A

PATIENT
  Age: 51 Year
  Sex: Female
  Weight: 63.6 kg

DRUGS (2)
  1. AVANDIA [Suspect]
     Route: 048
     Dates: start: 20080818, end: 20081101
  2. METFORMIN [Concomitant]
     Dosage: 1000MG TWICE PER DAY
     Route: 048
     Dates: start: 20040501

REACTIONS (2)
  - CHEST PAIN [None]
  - MALAISE [None]
